FAERS Safety Report 8305517-5 (Version None)
Quarter: 2012Q2

REPORT INFORMATION
  Report Type: 
  Country: None (occurrence: None)
  Receive Date: 20120423
  Receipt Date: 20120416
  Transmission Date: 20120825
  Serious: Yes (Other)
  Sender: FDA-Public Use
  Company Number: JP-GLAXOSMITHKLINE-B0794273A

PATIENT
  Sex: Female

DRUGS (3)
  1. CARBIDOPA AND LEVODOPA [Concomitant]
     Dosage: 300MG PER DAY
     Route: 048
     Dates: start: 20100401
  2. SYMMETREL [Concomitant]
     Dosage: 150MG PER DAY
     Route: 048
     Dates: start: 20100401
  3. REQUIP [Suspect]
     Indication: PARKINSON'S DISEASE
     Dosage: 3MG PER DAY
     Route: 048
     Dates: start: 20100401

REACTIONS (3)
  - CAMPTOCORMIA [None]
  - PARKINSON'S DISEASE [None]
  - MOBILITY DECREASED [None]
